FAERS Safety Report 4477094-0 (Version None)
Quarter: 2004Q4

REPORT INFORMATION
  Report Type: 
  Country: None (occurrence: None)
  Receive Date: 20041018
  Receipt Date: 20041013
  Transmission Date: 20050328
  Serious: Yes (Congenital Anomaly)
  Sender: FDA-Public Use
  Company Number: 200413063EU

PATIENT
  Sex: Male

DRUGS (2)
  1. CLOMID [Suspect]
     Indication: ANOVULATORY CYCLE
     Route: 064
     Dates: start: 19991016
  2. LEUCOVORIN CALCIUM [Concomitant]
     Indication: DRUG USE FOR UNKNOWN INDICATION
     Route: 064
     Dates: start: 19990601

REACTIONS (5)
  - DRUG EXPOSURE DURING PREGNANCY [None]
  - HYPOTONIA NEONATAL [None]
  - NEONATAL DISORDER [None]
  - NEUROLOGICAL SYMPTOM [None]
  - SPINA BIFIDA OCCULTA [None]
